FAERS Safety Report 10222788 (Version 1)
Quarter: 2014Q2

REPORT INFORMATION
  Report Type: Spontaneous
  Country: US (occurrence: US)
  Receive Date: 20140606
  Receipt Date: 20140606
  Transmission Date: 20141212
  Serious: Yes (Hospitalization, Other)
  Sender: FDA-Public Use
  Company Number: US-GILEAD-2014-0104495

PATIENT
  Sex: Female
  Weight: 70.75 kg

DRUGS (3)
  1. LETAIRIS [Suspect]
     Indication: PULMONARY ARTERIAL HYPERTENSION
     Dosage: 10 MG, QD
     Route: 065
     Dates: start: 20111012
  2. VENTAVIS [Concomitant]
  3. OXYGEN [Concomitant]

REACTIONS (4)
  - Renal failure [Unknown]
  - Unevaluable event [Unknown]
  - Unevaluable event [Unknown]
  - Unevaluable event [Unknown]
